FAERS Safety Report 6886603-3 (Version None)
Quarter: 2010Q3

REPORT INFORMATION
  Report Type: 
  Country: None (occurrence: None)
  Receive Date: 20100730
  Receipt Date: 20100721
  Transmission Date: 20110219
  Serious: No
  Sender: FDA-Public Use
  Company Number: US-BIOGENIDEC-2010BI025072

PATIENT
  Age: 55 Year
  Sex: Female

DRUGS (4)
  1. TYSABRI [Suspect]
     Indication: MULTIPLE SCLEROSIS
     Route: 042
     Dates: start: 20070321, end: 20081230
  2. TYSABRI [Suspect]
     Route: 042
     Dates: start: 20100421
  3. AVONEX [Concomitant]
     Indication: MULTIPLE SCLEROSIS
     Route: 030
     Dates: start: 19970502
  4. AVONEX [Concomitant]
     Route: 030
     Dates: start: 20040816

REACTIONS (1)
  - ASTHENIA [None]
